FAERS Safety Report 8243253-4 (Version None)
Quarter: 2012Q1

REPORT INFORMATION
  Report Type: 
  Country: None (occurrence: None)
  Receive Date: 20120329
  Receipt Date: 20120319
  Transmission Date: 20120608
  Serious: Yes (Hospitalization, Other)
  Sender: FDA-Public Use
  Company Number: US-SANOFI-AVENTIS-2012SA019231

PATIENT
  Age: 82 Year
  Sex: Male

DRUGS (5)
  1. DABIGATRAN ETEXILATE [Suspect]
     Route: 048
     Dates: start: 20110801, end: 20120119
  2. DABIGATRAN ETEXILATE [Suspect]
     Indication: ATRIAL FIBRILLATION
     Route: 048
     Dates: start: 20110501, end: 20110801
  3. TAMSULOSIN HCL [Concomitant]
     Indication: PROSTATIC DISORDER
  4. MULTAQ [Suspect]
     Indication: ATRIAL FIBRILLATION
     Route: 048
  5. LOSARTAN POTASSIUM [Concomitant]

REACTIONS (4)
  - DIARRHOEA [None]
  - RECTAL HAEMORRHAGE [None]
  - HAEMORRHAGE URINARY TRACT [None]
  - BLOOD URINE [None]
